FAERS Safety Report 7686141-4 (Version None)
Quarter: 2011Q3

REPORT INFORMATION
  Report Type: 
  Country: None (occurrence: None)
  Receive Date: 20110816
  Receipt Date: 20110730
  Transmission Date: 20111222
  Serious: Yes (Hospitalization, Other)
  Sender: FDA-Public Use
  Company Number: US-PFIZER INC-2011183598

PATIENT
  Age: 3 Year
  Sex: Female
  Weight: 15.9 kg

DRUGS (4)
  1. MOTRIN IB [Suspect]
     Indication: FEELING HOT
     Dosage: 150 MG, 1X/DAY AT BEDTIME
     Route: 048
     Dates: start: 20110724
  2. IBUPROFEN [Suspect]
     Route: 065
  3. MOTRIN IB [Suspect]
     Indication: MALAISE
  4. MOTRIN IB [Suspect]
     Indication: DYSURIA
     Dosage: 100 MG, 2X/DAY
     Route: 048
     Dates: start: 20110209, end: 20110209

REACTIONS (4)
  - PYREXIA [None]
  - VOMITING [None]
  - DIARRHOEA [None]
  - DIARRHOEA HAEMORRHAGIC [None]
